FAERS Safety Report 6137054-0 (Version None)
Quarter: 2009Q1

REPORT INFORMATION
  Report Type: 
  Country: None (occurrence: None)
  Receive Date: 20090326
  Receipt Date: 20090311
  Transmission Date: 20090719
  Serious: Yes (Death, Hospitalization)
  Sender: FDA-Public Use
  Company Number: DAV-AE-MTX-09-023

PATIENT
  Age: 53 Year
  Sex: Female

DRUGS (1)
  1. METHOTREXATE [Suspect]
     Indication: MYELOID LEUKAEMIA
     Dosage: INTRATHECAL
     Route: 037

REACTIONS (11)
  - EYELID PTOSIS [None]
  - FACIAL PARESIS [None]
  - GUILLAIN-BARRE SYNDROME [None]
  - HYPOREFLEXIA [None]
  - IIIRD NERVE PARALYSIS [None]
  - ISCHAEMIC STROKE [None]
  - MUSCULAR WEAKNESS [None]
  - PUPIL FIXED [None]
  - QUADRIPLEGIA [None]
  - RESPIRATORY DISORDER [None]
  - RESPIRATORY FAILURE [None]
